FAERS Safety Report 13825836 (Version 1)
Quarter: 2017Q3

REPORT INFORMATION
  Report Type: Report from Study
  Country: AU (occurrence: AU)
  Receive Date: 20170802
  Receipt Date: 20170802
  Transmission Date: 20171127
  Serious: Yes (Other)
  Sender: FDA-Public Use
  Company Number: AU-GILEAD-2017-0285700

PATIENT
  Age: 39 Year
  Sex: Male

DRUGS (4)
  1. ABACAVIR. [Concomitant]
     Active Substance: ABACAVIR
  2. ATAZANAVIR [Concomitant]
     Active Substance: ATAZANAVIR
  3. LOPINAVIR/RITONAVIR RANBAXY [Concomitant]
     Active Substance: LOPINAVIR\RITONAVIR
  4. TENOFOVIR DISOPROXIL FUMARATE. [Suspect]
     Active Substance: TENOFOVIR DISOPROXIL FUMARATE
     Indication: HIV INFECTION
     Route: 065

REACTIONS (2)
  - Osteoporosis [Unknown]
  - Fanconi syndrome acquired [Recovered/Resolved]
